FAERS Safety Report 4840493-9 (Version None)
Quarter: 2005Q4

REPORT INFORMATION
  Report Type: 
  Country: None (occurrence: None)
  Receive Date: 20051130
  Receipt Date: 20050822
  Transmission Date: 20060501
  Serious: No
  Sender: FDA-Public Use
  Company Number: US-BRISTOL-MYERS SQUIBB COMPANY-13085220

PATIENT
  Age: 54 Year
  Sex: Female
  Weight: 84 kg

DRUGS (9)
  1. ERBITUX [Suspect]
     Indication: COLON CANCER METASTATIC
     Dates: start: 20050718
  2. CAMPTOSAR [Concomitant]
     Dates: end: 20050808
  3. HYDROCHLOROTHIAZIDE [Concomitant]
  4. LOMOTIL [Concomitant]
  5. LISINOPRIL [Concomitant]
  6. SYNTHROID [Concomitant]
  7. BENADRYL [Concomitant]
     Indication: PREMEDICATION
  8. DECADRON [Concomitant]
     Indication: PREMEDICATION
  9. ZOFRAN [Concomitant]
     Indication: PREMEDICATION
     Route: 042

REACTIONS (1)
  - RASH [None]
